FAERS Safety Report 5585375-2 (Version None)
Quarter: 2008Q1

REPORT INFORMATION
  Report Type: 
  Country: None (occurrence: None)
  Receive Date: 20080109
  Receipt Date: 20080107
  Transmission Date: 20080703
  Serious: Yes (Disabling)
  Sender: FDA-Public Use
  Company Number: FR-JNJFOC-20071006739

PATIENT
  Sex: Female
  Weight: 50 kg

DRUGS (2)
  1. EPITOMAX [Suspect]
     Indication: HEADACHE
     Dosage: 2 TABLETS A DAY (IN THE EVENING)
     Route: 048
  2. TRUSOPT [Concomitant]
     Indication: INTRAOCULAR PRESSURE TEST
     Route: 047

REACTIONS (5)
  - COLOUR BLINDNESS [None]
  - DEPRESSION [None]
  - OPTIC NERVE DISORDER [None]
  - SCOTOMA [None]
  - VISUAL FIELD DEFECT [None]
